FAERS Safety Report 21247862 (Version 2)
Quarter: 2022Q3

REPORT INFORMATION
  Report Type: Spontaneous
  Country: BR (occurrence: BR)
  Receive Date: 20220824
  Receipt Date: 20220907
  Transmission Date: 20221027
  Serious: Yes (Other)
  Sender: FDA-Public Use
  Company Number: BR-GSKCCFAMERS-Case-01469155_AE-84045

PATIENT

DRUGS (1)
  1. SERETIDE [Suspect]
     Active Substance: FLUTICASONE PROPIONATE\SALMETEROL XINAFOATE
     Indication: Asthma
     Dosage: UNK, QID, TWICE AT MORNING AND TWICE AT NIGHT

REACTIONS (3)
  - Asthmatic crisis [Unknown]
  - Incorrect dose administered [Unknown]
  - Product complaint [Unknown]
